FAERS Safety Report 9164233 (Version 2)
Quarter: 2013Q1

REPORT INFORMATION
  Report Type: Spontaneous
  Country: US (occurrence: None)
  Receive Date: 20130226
  Receipt Date: 20130301
  Transmission Date: 20140127
  Serious: Yes (Other)
  Sender: FDA-Public Use
  Company Number: 2013AP003211

PATIENT
  Age: 19 Month
  Sex: Female

DRUGS (11)
  1. ALBUTEROL SULFATE INHALATION SOLUTION [Suspect]
     Indication: BRONCHOSPASM
     Dosage: 180 UGL INH
     Route: 055
  2. PHENYLEPHRINE [Suspect]
     Route: 061
  3. OXYMETAZOLINE [Suspect]
     Route: 045
  4. DIPHENHYDRAMINE [Suspect]
     Indication: CONTRAST MEDIA ALLERGY
     Route: 042
  5. DIPHENHYDRAMINE [Suspect]
     Route: 042
  6. IODINE [Suspect]
     Indication: IMAGING PROCEDURE
  7. MELPHALAN [Concomitant]
  8. ASPIRIN [Concomitant]
  9. HEPARIN [Concomitant]
  10. HYDROCORTISONE [Concomitant]
  11. DEXAMETHASONE [Concomitant]

REACTIONS (4)
  - Cerebral vasoconstriction [None]
  - Hypotension [None]
  - Contrast media allergy [None]
  - Hypertension [None]
